FAERS Safety Report 4697251-8 (Version None)
Quarter: 2005Q2

REPORT INFORMATION
  Report Type: 
  Country: None (occurrence: None)
  Receive Date: 20050621
  Receipt Date: 20050621
  Transmission Date: 20051028
  Serious: Yes (Other)
  Sender: FDA-Public Use
  Company Number: None

PATIENT
  Sex: Male
  Weight: 61 kg

DRUGS (5)
  1. CISPLATIN [Suspect]
     Indication: NEOPLASM MALIGNANT
     Dosage: 100 MG/M2 INTRAVENOUSLY ON DAYS 1 AND 22
     Route: 042
     Dates: start: 20050511
  2. RADIATION [Suspect]
     Dosage: (72 GY/42FX) FOR 6 WEEKS
  3. OXYCODONE HCL [Concomitant]
  4. AMBIEN [Concomitant]
  5. LISINOPRIL [Concomitant]

REACTIONS (9)
  - BLOOD ELECTROLYTES ABNORMAL [None]
  - BLOOD SODIUM DECREASED [None]
  - BLOOD UREA INCREASED [None]
  - CONFUSIONAL STATE [None]
  - DEHYDRATION [None]
  - FEBRILE NEUTROPENIA [None]
  - MENTAL STATUS CHANGES [None]
  - PNEUMONIA [None]
  - WHITE BLOOD CELL COUNT DECREASED [None]
